FAERS Safety Report 24752045 (Version 1)
Quarter: 2024Q4

REPORT INFORMATION
  Report Type: Spontaneous
  Country: ES (occurrence: ES)
  Receive Date: 20241219
  Receipt Date: 20241219
  Transmission Date: 20250115
  Serious: Yes (Life-Threatening, Hospitalization)
  Sender: RANBAXY
  Company Number: ES-EMA-DD-20241112-7482645-100518

PATIENT
  Age: 5 Year
  Sex: Male

DRUGS (4)
  1. CYCLOSPORINE [Suspect]
     Active Substance: CYCLOSPORINE
     Indication: Organ transplant
     Dosage: UNK
     Route: 065
     Dates: start: 2004
  2. DEXAMETHASONE [Concomitant]
     Active Substance: DEXAMETHASONE
     Indication: Organ transplant
     Dosage: UNK
     Route: 065
     Dates: start: 2004
  3. BUSULFAN [Concomitant]
     Active Substance: BUSULFAN
     Indication: Organ transplant
     Dosage: UNK
     Route: 065
     Dates: start: 2004
  4. CYCLOPHOSPHAMIDE [Concomitant]
     Active Substance: CYCLOPHOSPHAMIDE
     Indication: Organ transplant
     Dosage: UNK
     Route: 065
     Dates: start: 2004

REACTIONS (8)
  - Encephalopathy [Recovered/Resolved]
  - Electroencephalogram abnormal [Recovering/Resolving]
  - Magnetic resonance imaging abnormal [Recovering/Resolving]
  - Partial seizures [Recovering/Resolving]
  - Hypertension [Unknown]
  - Eye movement disorder [Unknown]
  - Altered state of consciousness [Unknown]
  - Status epilepticus [Recovering/Resolving]

NARRATIVE: CASE EVENT DATE: 20040101
